FAERS Safety Report 13091322 (Version 6)
Quarter: 2017Q3

REPORT INFORMATION
  Report Type: Report from Study
  Country: JP (occurrence: JP)
  Receive Date: 20170106
  Receipt Date: 20170707
  Transmission Date: 20171127
  Serious: Yes (Life-Threatening, Hospitalization, Other)
  Sender: FDA-Public Use
  Company Number: JP-B.I. PHARMACEUTICALS,INC./RIDGEFIELD-2017-NB-000011

PATIENT
  Age: 72 Year
  Sex: Male
  Weight: 67.3 kg

DRUGS (3)
  1. PRAZAXA [Suspect]
     Active Substance: DABIGATRAN ETEXILATE MESYLATE
     Indication: ATRIAL FIBRILLATION
     Route: 048
     Dates: start: 20170107
  2. PHYSIO 140 [Suspect]
     Active Substance: CALCIUM GLUCONATE\DEXTROSE\MAGNESIUM CHLORIDE\POTASSIUM CHLORIDE\SODIUM ACETATE\SODIUM CHLORIDE\TRISODIUM CITRATE DIHYDRATE
     Indication: PRODUCT USED FOR UNKNOWN INDICATION
     Route: 048
     Dates: start: 20170103, end: 20170130
  3. PRAZAXA [Suspect]
     Active Substance: DABIGATRAN ETEXILATE MESYLATE
     Indication: ATRIAL FIBRILLATION
     Route: 048
     Dates: end: 20170103

REACTIONS (14)
  - Hypernatraemia [Not Recovered/Not Resolved]
  - Brain contusion [Recovered/Resolved]
  - Circulatory collapse [Recovered/Resolved]
  - Extradural haematoma [Recovered/Resolved]
  - Tachycardia [Not Recovered/Not Resolved]
  - Dehydration [Recovered/Resolved]
  - Pyrexia [Recovered/Resolved]
  - Pneumonia [Not Recovered/Not Resolved]
  - Road traffic accident [Recovered/Resolved]
  - Device related infection [Recovered/Resolved]
  - Pneumonia aspiration [Recovered/Resolved]
  - Melaena [Recovered/Resolved]
  - Hepatic function abnormal [Not Recovered/Not Resolved]
  - Subdural hygroma [Not Recovered/Not Resolved]

NARRATIVE: CASE EVENT DATE: 20170103
